FAERS Safety Report 9555313 (Version 3)
Quarter: 2013Q4

REPORT INFORMATION
  Report Type: Spontaneous
  Country: DE (occurrence: DE)
  Receive Date: 20130926
  Receipt Date: 20131106
  Transmission Date: 20140711
  Serious: Yes (Other)
  Sender: FDA-Public Use
  Company Number: DE-THROMBOGENICS INC-JET-2013-238

PATIENT
  Age: 58 Year
  Sex: Male

DRUGS (1)
  1. JETREA [Suspect]
     Indication: VITREOUS ADHESIONS
     Dosage: 0.125 MG, ONE TIME DOSE
     Route: 031
     Dates: start: 20130913, end: 20130913

REACTIONS (3)
  - Corneal disorder [Recovered/Resolved]
  - Anterior chamber inflammation [Recovered/Resolved]
  - Visual impairment [Recovered/Resolved]
